FAERS Safety Report 4564978-8 (Version None)
Quarter: 2005Q1

REPORT INFORMATION
  Report Type: 
  Country: None (occurrence: None)
  Receive Date: 20050131
  Receipt Date: 20050118
  Transmission Date: 20050727
  Serious: Yes (Other)
  Sender: FDA-Public Use
  Company Number: US-JNJFOC-20050104699

PATIENT
  Age: 46 Year
  Sex: Male
  Weight: 81.65 kg

DRUGS (4)
  1. LEVAQUIN [Suspect]
     Indication: SINUSITIS
  2. BETA-BLOCKER [Concomitant]
  3. ZOCOR [Concomitant]
  4. IBUPROFEN [Concomitant]

REACTIONS (1)
  - DIPLOPIA [None]
